FAERS Safety Report 24553230 (Version 1)
Quarter: 2024Q4

REPORT INFORMATION
  Report Type: Spontaneous
  Country: CN (occurrence: CN)
  Receive Date: 20241028
  Receipt Date: 20241028
  Transmission Date: 20250115
  Serious: Yes (Other)
  Sender: STRIDES
  Company Number: CN-STRIDES ARCOLAB LIMITED-2024SP013643

PATIENT

DRUGS (2)
  1. ETOPOSIDE [Suspect]
     Active Substance: ETOPOSIDE
     Indication: Non-small cell lung cancer
     Dosage: 50 MILLIGRAM, QD;SOFT CAPSULE ON AN EMPTY STOMACH IN THE MORNING
     Route: 048
  2. CATEQUENTINIB [Suspect]
     Active Substance: CATEQUENTINIB
     Indication: Non-small cell lung cancer
     Dosage: 12 MILLIGRAM, QD;BEFORE BREAKFAST
     Route: 048

REACTIONS (1)
  - Haemoptysis [Recovered/Resolved]
